FAERS Safety Report 8414948-4 (Version None)
Quarter: 2012Q2

REPORT INFORMATION
  Report Type: 
  Country: None (occurrence: None)
  Receive Date: 20120601
  Receipt Date: 20120601
  Transmission Date: 20120825
  Serious: Yes (Disabling, Other)
  Sender: FDA-Public Use
  Company Number: None

PATIENT
  Age: 8 Year
  Sex: Male
  Weight: 38.5557 kg

DRUGS (2)
  1. ZARONTIN [Suspect]
     Indication: PETIT MAL EPILEPSY
     Dosage: 300MG -5ML- TWICE DAILY PO
     Route: 048
     Dates: start: 20100210, end: 20120531
  2. KEPPRA [Suspect]
     Dosage: 1150MG TWICE DAILY PO
     Route: 048
     Dates: start: 20110813, end: 20120531

REACTIONS (3)
  - SPEECH DISORDER [None]
  - MEMORY IMPAIRMENT [None]
  - CONFUSIONAL STATE [None]
